FAERS Safety Report 8009999-8 (Version None)
Quarter: 2011Q4

REPORT INFORMATION
  Report Type: 
  Country: None (occurrence: None)
  Receive Date: 20111228
  Receipt Date: 20111214
  Transmission Date: 20120403
  Serious: Yes (Hospitalization, Other)
  Sender: FDA-Public Use
  Company Number: US-ELI_LILLY_AND_COMPANY-US201108007727

PATIENT
  Sex: Female

DRUGS (11)
  1. OMEPRAZOLE [Concomitant]
     Dosage: 20 MG, BID
  2. CENTRUM SILVER [Concomitant]
     Dosage: UNK, PRN
  3. FORTEO [Suspect]
     Dosage: 20 UG, QD
     Route: 065
  4. HYDROCODONE [Concomitant]
     Indication: PAIN
     Dosage: 5/500 DAILY
  5. FORTEO [Suspect]
     Indication: OSTEOPOROSIS
     Dosage: 20 UG, QD
     Route: 065
     Dates: start: 20110728
  6. VITAMIN D [Concomitant]
     Dosage: 1000 U, UNK
  7. FORTEO [Suspect]
     Dosage: 20 UG, QD
     Route: 065
  8. MULTIVITAMIN [Concomitant]
     Dosage: UNK, BID
  9. ECHINACEA                          /01323501/ [Concomitant]
     Dosage: UNK, PRN
  10. PREDNISONE TAB [Concomitant]
     Indication: INFLAMMATION
     Dosage: 10 MG, UNK
     Dates: end: 20111201
  11. TEMAZEPAM [Concomitant]
     Dosage: 15 MG, UNK

REACTIONS (9)
  - FALL [None]
  - INFLAMMATION [None]
  - LUMBAR VERTEBRAL FRACTURE [None]
  - PAIN [None]
  - MUSCLE SPASMS [None]
  - BACK INJURY [None]
  - DYSSTASIA [None]
  - SPINAL COMPRESSION FRACTURE [None]
  - PARAESTHESIA [None]
